FAERS Safety Report 18613893 (Version 1)
Quarter: 2020Q4

REPORT INFORMATION
  Report Type: Spontaneous
  Country: CN (occurrence: CN)
  Receive Date: 20201214
  Receipt Date: 20201214
  Transmission Date: 20210114
  Serious: Yes (Other)
  Sender: FDA-Public Use
  Company Number: CN-BAUSCH-BL-2020-035647

PATIENT
  Age: 1 Month
  Sex: Male

DRUGS (1)
  1. TROPICAMIDE EYE DROPS [Suspect]
     Active Substance: TROPICAMIDE
     Indication: PREMEDICATION
     Route: 047
     Dates: start: 20201127, end: 20201127

REACTIONS (2)
  - Gastrointestinal sounds abnormal [Recovered/Resolved]
  - Bradycardia [Recovered/Resolved]

NARRATIVE: CASE EVENT DATE: 20201127
